FAERS Safety Report 6830753-4 (Version None)
Quarter: 2010Q3

REPORT INFORMATION
  Report Type: 
  Country: None (occurrence: None)
  Receive Date: 20100712
  Receipt Date: 20100628
  Transmission Date: 20110219
  Serious: Yes (Hospitalization)
  Sender: FDA-Public Use
  Company Number: PHHY2010US27243

PATIENT
  Sex: Male
  Weight: 65.77 kg

DRUGS (2)
  1. EXJADE [Suspect]
     Indication: APLASTIC ANAEMIA
     Dosage: 1250 MG, DAILY
     Route: 048
     Dates: start: 20100212
  2. EXJADE [Suspect]
     Indication: IRON OVERLOAD

REACTIONS (5)
  - DYSPHAGIA [None]
  - PYREXIA [None]
  - SKIN DISCOLOURATION [None]
  - THROAT IRRITATION [None]
  - VIRAL INFECTION [None]
